FAERS Safety Report 9233662 (Version 1)
Quarter: 2013Q2

REPORT INFORMATION
  Report Type: Spontaneous
  Country: US (occurrence: US)
  Receive Date: 20130416
  Receipt Date: 20130416
  Transmission Date: 20140414
  Serious: No
  Sender: FDA-Public Use
  Company Number: US-BANPHARM-20130637

PATIENT
  Age: 77 Year
  Sex: Female
  Weight: 65.77 kg

DRUGS (3)
  1. ALEVE LIQUID GELS 220MG [Suspect]
     Indication: MYALGIA
     Dosage: 2 DF, QD,
     Route: 048
     Dates: start: 201102
  2. ATENOLOL [Concomitant]
  3. DYAZIDE [Concomitant]

REACTIONS (1)
  - Abdominal discomfort [Not Recovered/Not Resolved]
